FAERS Safety Report 14649838 (Version 1)
Quarter: 2018Q1

REPORT INFORMATION
  Report Type: Spontaneous
  Country: US (occurrence: US)
  Receive Date: 20180316
  Receipt Date: 20180316
  Transmission Date: 20180509
  Serious: Yes (Other)
  Sender: FDA-Public Use
  Company Number: PHEH2018US009809

PATIENT
  Sex: Male

DRUGS (1)
  1. VOTRIENT [Suspect]
     Active Substance: PAZOPANIB HYDROCHLORIDE
     Indication: PERIPHERAL NERVOUS SYSTEM NEOPLASM
     Dosage: 200 MG, QID
     Route: 048

REACTIONS (4)
  - Product use in unapproved indication [Unknown]
  - Upper limb fracture [Unknown]
  - Peripheral nervous system neoplasm [Unknown]
  - Malignant neoplasm progression [Unknown]
